FAERS Safety Report 11874614 (Version 2)
Quarter: 2016Q1

REPORT INFORMATION
  Report Type: Report from Study
  Country: JP (occurrence: JP)
  Receive Date: 20151229
  Receipt Date: 20160310
  Transmission Date: 20160526
  Serious: Yes (Death, Hospitalization)
  Sender: FDA-Public Use
  Company Number: PHHY2014JP093181

PATIENT
  Age: 85 Year
  Sex: Male
  Weight: 82 kg

DRUGS (12)
  1. FUROSEMIDE. [Concomitant]
     Active Substance: FUROSEMIDE
     Indication: CONGESTIVE CARDIOMYOPATHY
     Dosage: 40 MG, QD
     Route: 048
     Dates: start: 20140702, end: 20141119
  2. NIFEDIPINE. [Concomitant]
     Active Substance: NIFEDIPINE
     Indication: HYPERTENSION
     Dosage: 40 MG, QD
     Route: 048
     Dates: end: 20141119
  3. ATENOLOL. [Concomitant]
     Active Substance: ATENOLOL
     Indication: HYPERTENSION
     Dosage: 25 MG, QD
     Route: 048
     Dates: end: 20141119
  4. AVAPRO [Concomitant]
     Active Substance: IRBESARTAN
     Indication: PRODUCT USED FOR UNKNOWN INDICATION
     Dosage: 100 MG, UNK
     Route: 048
  5. ASPARA POTASSIUM [Concomitant]
     Active Substance: POTASSIUM ASPARTATE
     Indication: CONGESTIVE CARDIOMYOPATHY
     Dosage: 300 MG, BID
     Route: 048
     Dates: start: 20130702, end: 20141119
  6. SEEBRI BREEZHALER CAPSUL [Suspect]
     Active Substance: GLYCOPYRROLATE
     Indication: EMPHYSEMA
  7. ALLOPURINOL. [Concomitant]
     Active Substance: ALLOPURINOL
     Indication: GOUT
     Dosage: 100 MG, BID
     Route: 048
     Dates: end: 20141119
  8. DIGOXIN. [Concomitant]
     Active Substance: DIGOXIN
     Indication: CONGESTIVE CARDIOMYOPATHY
     Dosage: 0.125 MG, QD
     Route: 048
     Dates: end: 20141119
  9. PIMOBENDAN [Concomitant]
     Active Substance: PIMOBENDAN
     Indication: CONGESTIVE CARDIOMYOPATHY
     Dosage: 2.5 MG, BID
     Route: 048
     Dates: start: 20140702, end: 20141119
  10. SEEBRI BREEZHALER CAPSUL [Suspect]
     Active Substance: GLYCOPYRROLATE
     Indication: CHRONIC OBSTRUCTIVE PULMONARY DISEASE
     Dosage: 50 UG, QD
     Route: 055
     Dates: start: 20140514, end: 20141119
  11. DOXAZOSIN [Concomitant]
     Active Substance: DOXAZOSIN\DOXAZOSIN MESYLATE
     Indication: HYPERTENSION
     Dosage: 2 MG, QD
     Route: 048
     Dates: end: 20141119
  12. OLMETEC [Concomitant]
     Active Substance: OLMESARTAN MEDOXOMIL
     Indication: HYPERTENSION
     Dosage: 20 MG, QD
     Route: 048
     Dates: start: 20140702, end: 20141119

REACTIONS (5)
  - Respiratory failure [Fatal]
  - Weight decreased [Unknown]
  - Cardiac failure chronic [Fatal]
  - Chronic obstructive pulmonary disease [Recovering/Resolving]
  - Respiratory distress [Recovering/Resolving]

NARRATIVE: CASE EVENT DATE: 20140702
